FAERS Safety Report 10046956 (Version 1)
Quarter: 2014Q1

REPORT INFORMATION
  Report Type: Spontaneous
  Country: FR (occurrence: None)
  Receive Date: 20140327
  Receipt Date: 20140327
  Transmission Date: 20141002
  Serious: Yes (Other)
  Sender: FDA-Public Use
  Company Number: 2014P1002491

PATIENT
  Age: 47 Year
  Sex: Female

DRUGS (1)
  1. CITALOPRAM [Suspect]

REACTIONS (1)
  - Drug reaction with eosinophilia and systemic symptoms [None]
